FAERS Safety Report 13897849 (Version 2)
Quarter: 2017Q3

REPORT INFORMATION
  Report Type: Spontaneous
  Country: US (occurrence: US)
  Receive Date: 20170823
  Receipt Date: 20170918
  Transmission Date: 20171127
  Serious: Yes (Hospitalization, Other)
  Sender: FDA-Public Use
  Company Number: US-PFIZER INC-2017364231

PATIENT
  Age: 51 Year
  Sex: Male
  Weight: 109 kg

DRUGS (9)
  1. RAPAMUNE [Suspect]
     Active Substance: SIROLIMUS
     Dosage: 1.5 MG, DAILY [TAKE 3 TABLETS (1.5 MG TOTAL)]
     Route: 048
     Dates: start: 20170914
  2. CELLCEPT [Concomitant]
     Active Substance: MYCOPHENOLATE MOFETIL\MYCOPHENOLATE MOFETIL HYDROCHLORIDE
     Indication: HEART TRANSPLANT
     Dosage: UNK
     Dates: start: 20170816
  3. FUROSEMIDE. [Concomitant]
     Active Substance: FUROSEMIDE
     Indication: RENAL DISORDER
     Dosage: UNK
  4. AZATHIOPRINE. [Concomitant]
     Active Substance: AZATHIOPRINE
     Indication: PROPHYLAXIS AGAINST TRANSPLANT REJECTION
     Dosage: 100 MG, 1X/DAY
     Dates: start: 1998, end: 20170815
  5. CELLCEPT [Concomitant]
     Active Substance: MYCOPHENOLATE MOFETIL\MYCOPHENOLATE MOFETIL HYDROCHLORIDE
     Dosage: 1000 MG, 2X/DAY [EVERY 12 HOURS SCHEDULED]
     Dates: start: 20170831
  6. RAPAMUNE [Suspect]
     Active Substance: SIROLIMUS
     Indication: PROPHYLAXIS AGAINST TRANSPLANT REJECTION
     Dosage: 2 MG, 1X/DAY
     Route: 048
  7. ASPIRIN. [Concomitant]
     Active Substance: ASPIRIN
     Indication: PROPHYLAXIS
     Dosage: 81 MG, 1X/DAY
  8. CARVEDILOL. [Concomitant]
     Active Substance: CARVEDILOL
     Indication: BLOOD PRESSURE MEASUREMENT
     Dosage: 12.5 MG, 2X/DAY
  9. RAPAMUNE [Suspect]
     Active Substance: SIROLIMUS
     Dosage: 1.5 MG, DAILY
     Route: 048
     Dates: start: 20170817, end: 20170914

REACTIONS (9)
  - Atrial fibrillation [Unknown]
  - Drug level increased [Unknown]
  - Drug ineffective for unapproved indication [Unknown]
  - Fatigue [Unknown]
  - Fluid retention [Unknown]
  - Abdominal pain [Unknown]
  - Chronic kidney disease [Unknown]
  - Weight increased [Unknown]
  - Peripheral swelling [Unknown]
